FAERS Safety Report 17716473 (Version 1)
Quarter: 2020Q2

REPORT INFORMATION
  Report Type: Spontaneous
  Country: DE (occurrence: DE)
  Receive Date: 20200428
  Receipt Date: 20200428
  Transmission Date: 20200714
  Serious: Yes (Hospitalization)
  Sender: FDA-Public Use
  Company Number: DE-AXELLIA-003096

PATIENT
  Age: 85 Year
  Sex: Male

DRUGS (11)
  1. VANCOMYCIN [Suspect]
     Active Substance: VANCOMYCIN
     Indication: PRODUCT USED FOR UNKNOWN INDICATION
     Dosage: 125 MG/2TAG, 1-0-0-0
     Route: 048
  2. FUROSEMIDE. [Suspect]
     Active Substance: FUROSEMIDE
     Indication: PRODUCT USED FOR UNKNOWN INDICATION
     Dosage: 40 MG, 0.5-0-0-0
     Route: 048
  3. ATORVASTATIN [Concomitant]
     Active Substance: ATORVASTATIN
     Dosage: 20 MG, 0-0-0.5-0
     Route: 048
  4. EISEN (II) [Concomitant]
     Dosage: 100 MG, 1-0-0-0
     Route: 048
  5. KALIUM [Concomitant]
     Active Substance: POTASSIUM CHLORIDE
     Dosage: 40 MMOL/ 2 TAG, 0-0-1-0
     Route: 048
  6. TAMSULOSIN/TAMSULOSIN HYDROCHLORIDE [Concomitant]
     Active Substance: TAMSULOSIN HYDROCHLORIDE
     Dosage: 0.4 MG, 0-0-1-0
     Route: 048
  7. EDOXABAN [Concomitant]
     Active Substance: EDOXABAN TOSYLATE
     Dosage: 30 MG, 1-0-0-0
     Route: 048
  8. METOPROLOL. [Concomitant]
     Active Substance: METOPROLOL
     Dosage: 47.5 MG, 0.5-0-0-0.5
     Route: 048
  9. VANCOMYCIN [Suspect]
     Active Substance: VANCOMYCIN
     Indication: PRODUCT USED FOR UNKNOWN INDICATION
     Dosage: 250 MG/ FOR A WEEK, DISCONTINUED
     Route: 048
  10. LIXIANA [Concomitant]
     Active Substance: EDOXABAN TOSYLATE
     Dosage: 30 MG, 1-0-0-0, LIXIANA 30 MG
     Route: 048
  11. AMIODARONE [Concomitant]
     Active Substance: AMIODARONE
     Dosage: 200 MG, 1-0-0-0
     Route: 048

REACTIONS (3)
  - General physical health deterioration [Unknown]
  - Condition aggravated [Unknown]
  - Renal impairment [Unknown]
